FAERS Safety Report 17866941 (Version 1)
Quarter: 2020Q2

REPORT INFORMATION
  Report Type: Spontaneous
  Country: ES (occurrence: ES)
  Receive Date: 20200605
  Receipt Date: 20200605
  Transmission Date: 20200714
  Serious: Yes (Other)
  Sender: FDA-Public Use
  Company Number: ES-AMGEN-ESPSP2020024568

PATIENT
  Sex: Male

DRUGS (2)
  1. BLINCYTO [Suspect]
     Active Substance: BLINATUMOMAB
     Indication: PRODUCT USED FOR UNKNOWN INDICATION
     Dosage: UNK
     Route: 065
     Dates: start: 20200210, end: 2020
  2. BLINCYTO [Suspect]
     Active Substance: BLINATUMOMAB
     Dosage: UNK
     Route: 065
     Dates: start: 2020, end: 2020

REACTIONS (8)
  - Fungal infection [Unknown]
  - Atrial fibrillation [Recovered/Resolved]
  - Bacterial sepsis [Recovered/Resolved]
  - Pneumonia [Unknown]
  - Peripheral vascular disorder [Unknown]
  - Hepatotoxicity [Unknown]
  - Septic shock [Recovering/Resolving]
  - Transaminases increased [Unknown]

NARRATIVE: CASE EVENT DATE: 2020
